FAERS Safety Report 20739290 (Version 1)
Quarter: 2022Q2

REPORT INFORMATION
  Report Type: Report from Study
  Country: CA (occurrence: CA)
  Receive Date: 20220422
  Receipt Date: 20220422
  Transmission Date: 20220721
  Serious: Yes (Other)
  Sender: FDA-Public Use
  Company Number: CA-BAUSCH-BL-2022-009588

PATIENT
  Age: 28 Year
  Sex: Female

DRUGS (13)
  1. ACYCLOVIR [Suspect]
     Active Substance: ACYCLOVIR
     Indication: Premedication
     Route: 065
  2. ALEMTUZUMAB [Suspect]
     Active Substance: ALEMTUZUMAB
     Indication: Relapsing-remitting multiple sclerosis
     Route: 041
  3. ALEMTUZUMAB [Suspect]
     Active Substance: ALEMTUZUMAB
     Route: 041
  4. ACETAMINOPHEN [Concomitant]
     Active Substance: ACETAMINOPHEN
     Indication: Premedication
     Route: 048
  5. ACYCLOVIR [Concomitant]
     Active Substance: ACYCLOVIR
     Indication: Premedication
     Route: 048
  6. BENADRYL [Concomitant]
     Active Substance: DIPHENHYDRAMINE HYDROCHLORIDE
     Indication: Premedication
     Route: 048
  7. CETIRIZINE HYDROCHLORIDE [Concomitant]
     Active Substance: CETIRIZINE HYDROCHLORIDE
     Indication: Product used for unknown indication
     Route: 048
  8. GABAPENTIN [Concomitant]
     Active Substance: GABAPENTIN
     Indication: Product used for unknown indication
     Route: 065
  9. GRAVOL [Concomitant]
     Active Substance: DIMENHYDRINATE
     Indication: Premedication
     Route: 048
  10. IBUPROFEN [Concomitant]
     Active Substance: IBUPROFEN
     Indication: Chest pain
     Route: 048
  11. METHYLPREDNISOLONE [Concomitant]
     Active Substance: METHYLPREDNISOLONE
     Indication: Premedication
     Route: 042
  12. METHYLPREDNISOLONE [Concomitant]
     Active Substance: METHYLPREDNISOLONE
     Route: 042
  13. RANITIDINE [Concomitant]
     Active Substance: RANITIDINE
     Indication: Premedication
     Route: 048

REACTIONS (26)
  - Abdominal discomfort [Not Recovered/Not Resolved]
  - Abdominal pain upper [Not Recovered/Not Resolved]
  - Blood pressure decreased [Not Recovered/Not Resolved]
  - Blood urine present [Not Recovered/Not Resolved]
  - Body temperature increased [Not Recovered/Not Resolved]
  - Chest discomfort [Not Recovered/Not Resolved]
  - Chest pain [Not Recovered/Not Resolved]
  - Dizziness [Not Recovered/Not Resolved]
  - Dyspnoea [Not Recovered/Not Resolved]
  - Dyspnoea exertional [Not Recovered/Not Resolved]
  - Feeling cold [Not Recovered/Not Resolved]
  - Feeling hot [Not Recovered/Not Resolved]
  - Haematocrit decreased [Not Recovered/Not Resolved]
  - Haemoglobin decreased [Not Recovered/Not Resolved]
  - Herpes zoster [Not Recovered/Not Resolved]
  - Headache [Not Recovered/Not Resolved]
  - Limb discomfort [Not Recovered/Not Resolved]
  - Lymphocyte count decreased [Not Recovered/Not Resolved]
  - Middle insomnia [Not Recovered/Not Resolved]
  - Multiple sclerosis [Not Recovered/Not Resolved]
  - Nausea [Not Recovered/Not Resolved]
  - Pain in extremity [Not Recovered/Not Resolved]
  - Stress [Not Recovered/Not Resolved]
  - Tachypnoea [Not Recovered/Not Resolved]
  - Urine abnormality [Not Recovered/Not Resolved]
  - Urine leukocyte esterase positive [Not Recovered/Not Resolved]
